FAERS Safety Report 9657354 (Version 2)
Quarter: 2014Q1

REPORT INFORMATION
  Report Type: Spontaneous
  Country: FR (occurrence: FR)
  Receive Date: 20131030
  Receipt Date: 20140129
  Transmission Date: 20141002
  Serious: Yes (Hospitalization)
  Sender: FDA-Public Use
  Company Number: FR-GLAXOSMITHKLINE-B0934820A

PATIENT
  Age: 1 Year
  Sex: Male

DRUGS (2)
  1. LAMICTAL [Suspect]
     Indication: PRODUCT USED FOR UNKNOWN INDICATION
     Dosage: 50MG SEE DOSAGE TEXT
     Route: 048
     Dates: start: 20130618, end: 20130618
  2. URBANYL [Suspect]
     Indication: PRODUCT USED FOR UNKNOWN INDICATION
     Dosage: 10MG SEE DOSAGE TEXT
     Route: 048
     Dates: start: 20130618, end: 20130618

REACTIONS (2)
  - Poisoning [Recovered/Resolved]
  - Accidental exposure to product by child [Unknown]
